FAERS Safety Report 9723816 (Version 1)
Quarter: 2013Q4

REPORT INFORMATION
  Report Type: Spontaneous
  Country: GR (occurrence: GR)
  Receive Date: 20131202
  Receipt Date: 20131202
  Transmission Date: 20140711
  Serious: Yes (Other)
  Sender: FDA-Public Use
  Company Number: GR-PFIZER INC-2013336627

PATIENT
  Age: 55 Year
  Sex: Male

DRUGS (8)
  1. LIPITOR [Suspect]
     Dosage: 10 MG, UNK
  2. LIPITOR [Suspect]
     Dosage: 20 MG, UNK
  3. LIPITOR [Suspect]
     Dosage: 80 MG, UNK
  4. LOBIVON [Concomitant]
  5. KARVEZIDE [Concomitant]
  6. SALOSPIR [Concomitant]
  7. ATROPINE [Concomitant]
  8. EFFIENT [Concomitant]

REACTIONS (3)
  - Myocardial infarction [Unknown]
  - Cholecystitis [Unknown]
  - Blood bilirubin increased [Unknown]
